FAERS Safety Report 12406893 (Version 3)
Quarter: 2017Q2

REPORT INFORMATION
  Report Type: Spontaneous
  Country: US (occurrence: US)
  Receive Date: 20160526
  Receipt Date: 20170403
  Transmission Date: 20170830
  Serious: Yes (Hospitalization)
  Sender: FDA-Public Use
  Company Number: US-PFIZER INC-2016268821

PATIENT
  Age: 52 Year
  Sex: Female
  Weight: 53.52 kg

DRUGS (4)
  1. PROPANOLOL HCL [Suspect]
     Active Substance: PROPRANOLOL HYDROCHLORIDE
  2. TRAZODONE [Suspect]
     Active Substance: TRAZODONE HYDROCHLORIDE
  3. FIORICET [Suspect]
     Active Substance: ACETAMINOPHEN\BUTALBITAL\CAFFEINE
  4. LORAZEPAM. [Suspect]
     Active Substance: LORAZEPAM
     Dosage: 30 MG TABLET

REACTIONS (7)
  - Intentional overdose [Recovered/Resolved]
  - Concussion [Unknown]
  - Suicide attempt [Recovered/Resolved]
  - Fall [Unknown]
  - Hunger [Unknown]
  - Muscular weakness [Unknown]
  - Eye contusion [Unknown]

NARRATIVE: CASE EVENT DATE: 201603
